FAERS Safety Report 7293094-X (Version None)
Quarter: 2011Q1

REPORT INFORMATION
  Report Type: 
  Country: None (occurrence: None)
  Receive Date: 20110215
  Receipt Date: 20110211
  Transmission Date: 20110831
  Serious: Yes (Life-Threatening, Other)
  Sender: FDA-Public Use
  Company Number: BR-ROCHE-753063

PATIENT
  Age: 36 Year
  Sex: Female
  Weight: 73 kg

DRUGS (7)
  1. CYMEVENE [Suspect]
     Indication: CYTOMEGALOVIRUS GASTRITIS
     Dosage: FORM: INFUSION. ROUTE: NOT REPORTED.
     Route: 050
     Dates: start: 20100701, end: 20100701
  2. GANCICLOVIR (NON-ROCHE) [Suspect]
     Indication: CYTOMEGALOVIRUS GASTRITIS
     Route: 042
     Dates: start: 20110106, end: 20110111
  3. TACROLIMUS [Concomitant]
  4. OMEPRAZOLE [Concomitant]
  5. PREDNISONE [Concomitant]
  6. AZATHIOPRINE [Concomitant]
  7. NIFEDIPINE [Concomitant]

REACTIONS (2)
  - ANAPHYLACTIC REACTION [None]
  - CYTOMEGALOVIRUS GASTRITIS [None]
